FAERS Safety Report 17531537 (Version 3)
Quarter: 2021Q2

REPORT INFORMATION
  Report Type: Spontaneous
  Country: US (occurrence: US)
  Receive Date: 20200311
  Receipt Date: 20210419
  Transmission Date: 20210716
  Serious: No
  Sender: FDA-Public Use
  Company Number: US-SA-2020SA060937

PATIENT
  Age: 48 Year
  Sex: Female

DRUGS (10)
  1. TRAMADOL HCL [Concomitant]
     Active Substance: TRAMADOL HYDROCHLORIDE
  2. HYDROXYZINE HCL [Concomitant]
     Active Substance: HYDROXYZINE HYDROCHLORIDE
  3. ESZOPICLONE. [Concomitant]
     Active Substance: ESZOPICLONE
  4. PROGESTERONE. [Concomitant]
     Active Substance: PROGESTERONE
  5. SPIRONOLACTON [Concomitant]
     Active Substance: SPIRONOLACTONE
  6. DUPIXENT [Suspect]
     Active Substance: DUPILUMAB
     Indication: DERMATITIS
     Dosage: 2 DF
     Dates: start: 20200304
  7. DUPIXENT [Suspect]
     Active Substance: DUPILUMAB
     Indication: DERMATITIS ATOPIC
     Dosage: 300 MG, QOW
     Route: 058
     Dates: start: 20200513
  8. CLONAZEPAM. [Concomitant]
     Active Substance: CLONAZEPAM
  9. ESTRADIOL. [Concomitant]
     Active Substance: ESTRADIOL
  10. TIROSINT?SOL [Concomitant]
     Active Substance: LEVOTHYROXINE SODIUM

REACTIONS (4)
  - Drug ineffective [Unknown]
  - Dermatitis atopic [Not Recovered/Not Resolved]
  - Injection site pain [Unknown]
  - Discomfort [Unknown]

NARRATIVE: CASE EVENT DATE: 2020
